FAERS Safety Report 5053084-4 (Version None)
Quarter: 2006Q3

REPORT INFORMATION
  Report Type: 
  Country: None (occurrence: None)
  Receive Date: 20060717
  Receipt Date: 20060410
  Transmission Date: 20061208
  Serious: Yes (Other)
  Sender: FDA-Public Use
  Company Number: AU-BOEHRINGER INGELHEIM PHARMACEUTICALS, INC.-2006-BP-04513AU

PATIENT
  Sex: Male

DRUGS (6)
  1. SPIRIVA [Suspect]
     Indication: CHRONIC OBSTRUCTIVE PULMONARY DISEASE
     Dates: start: 20050601
  2. QVAR 40 [Concomitant]
  3. BRICANYL (TERBUTALINE) [Concomitant]
  4. RHINOCORT [Concomitant]
  5. VIBRA-TABS [Concomitant]
  6. LASIX (FRUSEMIDE) [Concomitant]

REACTIONS (2)
  - DEVICE FAILURE [None]
  - URINARY RETENTION [None]
